FAERS Safety Report 8880185 (Version 1)
Quarter: 2012Q4

REPORT INFORMATION
  Report Type: 
  Country: NO (occurrence: NO)
  Receive Date: 20121031
  Receipt Date: 20121031
  Transmission Date: 20130627
  Serious: Yes (Hospitalization)
  Sender: FDA-Public Use
  Company Number: NO-ASTRAZENECA-2012SE80774

PATIENT
  Age: 79 Year
  Sex: Male

DRUGS (10)
  1. BRILIQUE [Suspect]
     Indication: ACUTE MYOCARDIAL INFARCTION
     Route: 048
     Dates: start: 20120929
  2. MAREVAN [Interacting]
     Dosage: 12.5 tablets spread over one week intervals
     Route: 048
  3. FRAGMIN [Interacting]
     Route: 058
  4. ALBYL-E [Interacting]
     Route: 048
  5. LIPITOR [Concomitant]
     Route: 048
  6. LANOXIN [Concomitant]
     Route: 048
  7. PARACET [Concomitant]
     Route: 048
  8. SELO-ZOK [Concomitant]
     Route: 048
  9. SOMAC [Concomitant]
     Route: 048
  10. TRIATEC [Concomitant]
     Route: 048

REACTIONS (2)
  - Drug interaction [Recovered/Resolved]
  - Haemorrhage [Recovered/Resolved]
